FAERS Safety Report 5426440-X (Version None)
Quarter: 2007Q3

REPORT INFORMATION
  Report Type: 
  Country: None (occurrence: None)
  Receive Date: 20070827
  Receipt Date: 20070817
  Transmission Date: 20080115
  Serious: Yes (Other)
  Sender: FDA-Public Use
  Company Number: US-TYCO HEALTHCARE/MALLINCKRODT-T200700955

PATIENT

DRUGS (1)
  1. OPTIRAY 300 [Suspect]
     Indication: COMPUTERISED TOMOGRAM
     Dosage: 100 ML, SINGLE
     Route: 042
     Dates: start: 20070814, end: 20070814

REACTIONS (5)
  - DYSPHAGIA [None]
  - DYSPNOEA [None]
  - FLUSHING [None]
  - PHARYNGEAL OEDEMA [None]
  - PRURITUS GENERALISED [None]
